FAERS Safety Report 21452753 (Version 1)
Quarter: 2022Q4

REPORT INFORMATION
  Report Type: Other
  Country: PL (occurrence: PL)
  Receive Date: 20221013
  Receipt Date: 20221013
  Transmission Date: 20230113
  Serious: Yes (Hospitalization)
  Sender: FDA-Public Use
  Company Number: PL-VELOXIS PHARMACEUTICALS-2022VELPL-000696

PATIENT
  Age: 21 Year
  Sex: Female

DRUGS (3)
  1. MYCOPHENOLATE MOFETIL [Suspect]
     Active Substance: MYCOPHENOLATE MOFETIL
     Indication: Prophylaxis against transplant rejection
     Dosage: 500 MILLIGRAM, BID
     Route: 048
  2. PREDNISONE [Suspect]
     Active Substance: PREDNISONE
     Indication: Prophylaxis against transplant rejection
     Dosage: 15 MILLIGRAM, QD
     Route: 065
  3. TACROLIMUS [Suspect]
     Active Substance: TACROLIMUS
     Indication: Prophylaxis against transplant rejection
     Route: 065

REACTIONS (5)
  - Neutrophilia [Unknown]
  - Leukocytosis [Unknown]
  - Antibody test positive [Unknown]
  - Blood magnesium decreased [Unknown]
  - Catatonia [Unknown]
